FAERS Safety Report 5033300-5 (Version None)
Quarter: 2006Q2

REPORT INFORMATION
  Report Type: 
  Country: None (occurrence: None)
  Receive Date: 20060511
  Receipt Date: 20060320
  Transmission Date: 20061013
  Serious: No
  Sender: FDA-Public Use
  Company Number: 200612964US

PATIENT
  Age: 65 Year
  Sex: Male

DRUGS (6)
  1. APIDRA [Suspect]
     Indication: DIABETES MELLITUS NON-INSULIN-DEPENDENT
     Dates: start: 20060301
  2. ASPIRIN [Concomitant]
  3. LISINOPRIL [Concomitant]
  4. EZETIMIBE (ZETIA ATENOLOL) [Concomitant]
  5. PANTOPRAZOLE SODIUM [Concomitant]
  6. FLAGYL [Concomitant]

REACTIONS (2)
  - BLOOD GLUCOSE INCREASED [None]
  - INSOMNIA [None]
